FAERS Safety Report 16290305 (Version 1)
Quarter: 2019Q2

REPORT INFORMATION
  Report Type: Spontaneous
  Country: EG (occurrence: EG)
  Receive Date: 20190509
  Receipt Date: 20190509
  Transmission Date: 20190711
  Serious: Yes (Death, Hospitalization, Disabling, Other)
  Sender: FDA-Public Use
  Company Number: EG-SA-2019SA126479

PATIENT
  Age: 16 Year
  Sex: Female
  Weight: 45 kg

DRUGS (1)
  1. CEREZYME [Suspect]
     Active Substance: IMIGLUCERASE
     Indication: GAUCHER^S DISEASE TYPE III
     Dosage: 40 IU/KG, QOW
     Route: 041
     Dates: start: 20180701, end: 201903

REACTIONS (1)
  - Cardiac operation [Fatal]

NARRATIVE: CASE EVENT DATE: 20190415
